FAERS Safety Report 7965348-2 (Version None)
Quarter: 2011Q4

REPORT INFORMATION
  Report Type: 
  Country: None (occurrence: None)
  Receive Date: 20111208
  Receipt Date: 20111123
  Transmission Date: 20120403
  Serious: No
  Sender: FDA-Public Use
  Company Number: PHEH2011US010134

PATIENT
  Sex: Female

DRUGS (10)
  1. SYNTHROID [Concomitant]
     Dosage: 175 UG, UNK
  2. ZOLOFT [Concomitant]
     Dosage: 50 MG, UNK
  3. EXEMESTANE [Concomitant]
     Dosage: UNK UKN, UNK
  4. VITAMIN-MINERAL COMPOUND TAB [Concomitant]
     Dosage: UNK UKN, UNK
  5. CALCITRIOL [Concomitant]
     Dosage: 25 UG, UNK
  6. AFINITOR [Suspect]
  7. AROMASIN [Concomitant]
     Dosage: UNK UKN, UNK
  8. ASCORBIC ACID [Concomitant]
     Dosage: UNK UKN, UNK
  9. CALCIUM [Concomitant]
     Dosage: UNK UKN, UNK
  10. TASIGNA [Suspect]
     Indication: BREAST CANCER
     Dosage: UNK UKN, UNK

REACTIONS (7)
  - CHILLS [None]
  - VOMITING [None]
  - DECREASED APPETITE [None]
  - ASTHENIA [None]
  - DYSPNOEA [None]
  - HEADACHE [None]
  - PYREXIA [None]
